FAERS Safety Report 6758756-9 (Version None)
Quarter: 2010Q2

REPORT INFORMATION
  Report Type: 
  Country: None (occurrence: None)
  Receive Date: 20100607
  Receipt Date: 20100527
  Transmission Date: 20101027
  Serious: Yes (Other)
  Sender: FDA-Public Use
  Company Number: US-AMGEN-QUU415197

PATIENT
  Sex: Female

DRUGS (1)
  1. ENBREL [Suspect]
     Indication: RHEUMATOID ARTHRITIS
     Route: 058
     Dates: end: 20100501

REACTIONS (6)
  - CONTUSION [None]
  - ERYTHEMA [None]
  - JOINT EFFUSION [None]
  - JOINT STIFFNESS [None]
  - LIP SWELLING [None]
  - URTICARIA [None]
